FAERS Safety Report 13378345 (Version 1)
Quarter: 2017Q1

REPORT INFORMATION
  Report Type: Report from Study
  Country: US (occurrence: BR)
  Receive Date: 20170328
  Receipt Date: 20170328
  Transmission Date: 20170429
  Serious: Yes (Other)
  Sender: FDA-Public Use
  Company Number: US-SUNOVION-2017SUN001299

PATIENT
  Sex: Male
  Weight: 75 kg

DRUGS (3)
  1. INDACATEROL AND GLYCOPYRROLATE [Suspect]
     Active Substance: GLYCOPYRROLATE\INDACATEROL MALEATE
     Indication: CHRONIC OBSTRUCTIVE PULMONARY DISEASE
     Dosage: UNK
     Route: 065
  2. INDACATEROL AND GLYCOPYRROLATE [Suspect]
     Active Substance: GLYCOPYRROLATE\INDACATEROL MALEATE
     Indication: EMPHYSEMA
  3. INDACATEROL [Suspect]
     Active Substance: INDACATEROL
     Indication: PRODUCT USED FOR UNKNOWN INDICATION
     Dosage: UNK
     Route: 065

REACTIONS (15)
  - Pain in extremity [Unknown]
  - Osteonecrosis [Unknown]
  - Musculoskeletal pain [Unknown]
  - Asthenia [Unknown]
  - General physical health deterioration [Unknown]
  - Stress [Unknown]
  - Limb asymmetry [Unknown]
  - Head discomfort [Unknown]
  - Weight increased [Unknown]
  - Gait disturbance [Unknown]
  - Hypoaesthesia [Unknown]
  - Anxiety [Unknown]
  - Forced vital capacity decreased [Unknown]
  - Irritability [Unknown]
  - Agitation [Unknown]
